FAERS Safety Report 6641956-6 (Version None)
Quarter: 2010Q1

REPORT INFORMATION
  Report Type: 
  Country: None (occurrence: None)
  Receive Date: 20100319
  Receipt Date: 20100310
  Transmission Date: 20100710
  Serious: Yes (Hospitalization)
  Sender: FDA-Public Use
  Company Number: US-ASTRAZENECA-2010SE05473

PATIENT
  Age: 28260 Day
  Sex: Female
  Weight: 81.6 kg

DRUGS (19)
  1. CRESTOR [Suspect]
     Indication: BLOOD CHOLESTEROL INCREASED
     Route: 048
     Dates: start: 20060101, end: 20100102
  2. CRESTOR [Suspect]
     Route: 048
  3. TOPROL-XL [Concomitant]
     Route: 048
  4. SYMBICORT [Concomitant]
     Dosage: 0.125
     Route: 055
  5. BABY ASPIRIN [Concomitant]
  6. MICARDIS HCTZ [Concomitant]
  7. CARDIZEM [Concomitant]
  8. MICARDIS [Concomitant]
  9. COUMADIN [Concomitant]
  10. ALLEGRA [Concomitant]
  11. CELEBREX [Concomitant]
     Dosage: AS NEEDED
  12. CELEBREX [Concomitant]
  13. CODONIX [Concomitant]
  14. PROTONIX [Concomitant]
  15. SYNTHROID [Concomitant]
  16. EVISTA [Concomitant]
     Route: 048
  17. BENEFIBER [Concomitant]
  18. LOPRESSOR [Concomitant]
  19. XALATAN [Concomitant]

REACTIONS (4)
  - CAROTID ARTERY OCCLUSION [None]
  - CEREBRAL INFARCTION [None]
  - CEREBROVASCULAR ACCIDENT [None]
  - EMBOLIC STROKE [None]
